FAERS Safety Report 5981518-7 (Version None)
Quarter: 2008Q4

REPORT INFORMATION
  Report Type: 
  Country: None (occurrence: None)
  Receive Date: 20081126
  Receipt Date: 20071220
  Transmission Date: 20090506
  Serious: Yes (Other)
  Sender: FDA-Public Use
  Company Number: 2007BH009993

PATIENT
  Age: 42 Year
  Sex: Male

DRUGS (9)
  1. DIANEAL [Suspect]
     Indication: PERITONEAL DIALYSIS
     Dosage: IP
     Route: 033
     Dates: start: 20070801
  2. DIANEAL [Suspect]
     Indication: PERITONEAL DIALYSIS
     Dosage: IP
     Route: 033
     Dates: start: 20070801
  3. ACCUPRIL [Concomitant]
  4. MINOXIDIL [Concomitant]
  5. RENAGEL [Concomitant]
  6. PHOSLO [Concomitant]
  7. SENSIPAR [Concomitant]
  8. EPOGEN [Concomitant]
  9. BENOFER [Concomitant]

REACTIONS (2)
  - PERITONITIS BACTERIAL [None]
  - PYREXIA [None]
